FAERS Safety Report 8356611-4 (Version None)
Quarter: 2012Q2

REPORT INFORMATION
  Report Type: 
  Country: None (occurrence: None)
  Receive Date: 20120514
  Receipt Date: 20120509
  Transmission Date: 20120825
  Serious: Yes (Other)
  Sender: FDA-Public Use
  Company Number: PHHY2011CR19621

PATIENT
  Age: 85 Year
  Sex: Male

DRUGS (4)
  1. BISOPROLOL FUMARATE [Concomitant]
     Dosage: 5 MG / DAY
     Route: 048
  2. EXELON [Suspect]
     Indication: DEMENTIA
     Dosage: 9.5 MG / 24 HOURS
     Route: 062
  3. COAPROVEL [Concomitant]
     Dosage: 1 DF, UNK
     Route: 048
  4. INSULIN [Concomitant]
     Indication: DIABETES MELLITUS
     Dosage: 20 U IN MORNING AND 12 U IN EVENING
     Route: 058

REACTIONS (5)
  - DIASTOLIC DYSFUNCTION [None]
  - VENTRICULAR EXTRASYSTOLES [None]
  - ISCHAEMIC CARDIOMYOPATHY [None]
  - BUNDLE BRANCH BLOCK LEFT [None]
  - HYPERTENSIVE CARDIOMYOPATHY [None]
